FAERS Safety Report 14513975 (Version 1)
Quarter: 2018Q1

REPORT INFORMATION
  Report Type: Spontaneous
  Country: US (occurrence: US)
  Receive Date: 20180208
  Receipt Date: 20180208
  Transmission Date: 20180509
  Serious: Yes (Disabling, Other)
  Sender: FDA-Public Use
  Company Number: None

PATIENT
  Sex: Female
  Weight: 113.4 kg

DRUGS (10)
  1. METFORMIN [Concomitant]
     Active Substance: METFORMIN HYDROCHLORIDE
  2. AMARYL [Suspect]
     Active Substance: GLIMEPIRIDE
  3. TURMERIC [Concomitant]
     Active Substance: HERBALS\TURMERIC
  4. MAGNESIUM [Concomitant]
     Active Substance: MAGNESIUM
  5. OSELTAMIVIR 75 MG GENERIC FOR TAMIFLU [Suspect]
     Active Substance: OSELTAMIVIR PHOSPHATE
     Indication: INFLUENZA
     Dosage: ?          QUANTITY:1 CAPSULE(S);?
     Route: 048
     Dates: start: 20180126, end: 20180128
  6. BENSONATE [Concomitant]
  7. TRAMADOL. [Concomitant]
     Active Substance: TRAMADOL
  8. HYDROCODONE BITARTRATE AND ACETAMINOPHEN [Concomitant]
     Active Substance: ACETAMINOPHEN\HYDROCODONE BITARTRATE
  9. ALBUTEROL RESPICLICK [Concomitant]
  10. VITAMIN B12 [Concomitant]
     Active Substance: CYANOCOBALAMIN

REACTIONS (3)
  - Conversion disorder [None]
  - Anxiety [None]
  - Aggression [None]

NARRATIVE: CASE EVENT DATE: 20180127
